FAERS Safety Report 8085186-2 (Version None)
Quarter: 2012Q1

REPORT INFORMATION
  Report Type: 
  Country: None (occurrence: None)
  Receive Date: 20120128
  Receipt Date: 20110329
  Transmission Date: 20120608
  Serious: No
  Sender: FDA-Public Use
  Company Number: US-ABBOTT-11P-163-0714901-00

PATIENT
  Age: 34 Year
  Sex: Female

DRUGS (7)
  1. FOLIC ACID [Concomitant]
     Indication: PRODUCT USED FOR UNKNOWN INDICATION
  2. ZOLOFT [Concomitant]
     Indication: DEPRESSION
  3. HUMIRA [Suspect]
     Indication: PSORIATIC ARTHROPATHY
     Route: 058
     Dates: start: 20110322
  4. NAPROXEN (ALEVE) [Concomitant]
     Indication: PAIN
     Dosage: 3 TABS EVERY 3-4 DAYS PRN
  5. MULTI-VITAMIN [Concomitant]
     Indication: VITAMIN SUPPLEMENTATION
  6. BIRTH CONTROL PILLS [Concomitant]
     Indication: CONTRACEPTION
  7. METHOTREXATE [Concomitant]
     Indication: PSORIATIC ARTHROPATHY
     Dosage: 6 TABLETS WEEKLY

REACTIONS (4)
  - SINUS CONGESTION [None]
  - RESPIRATORY TRACT CONGESTION [None]
  - PYREXIA [None]
  - RHINORRHOEA [None]
